FAERS Safety Report 6025203-4 (Version None)
Quarter: 2008Q4

REPORT INFORMATION
  Report Type: 
  Country: None (occurrence: None)
  Receive Date: 20081229
  Receipt Date: 20081229
  Transmission Date: 20090506
  Serious: Yes (Life-Threatening, Hospitalization)
  Sender: FDA-Public Use
  Company Number: None

PATIENT
  Age: 15 Year
  Sex: Female
  Weight: 67 kg

DRUGS (6)
  1. TRUVADA [Suspect]
     Indication: HIV INFECTION
     Dosage: 500 MILLIGRAMS ONCE DAILY ORALLY
     Route: 048
     Dates: start: 20071222, end: 20080806
  2. NEVIRAPINE [Suspect]
     Indication: HIV INFECTION
     Dosage: 200 MILLIGRAMS TWICE DAILY ORALLY
     Route: 048
     Dates: start: 20071222
  3. ZIDOVUDINE [Suspect]
     Indication: HIV INFECTION
     Dosage: 300 MILLIGRAMS TWICE DAILY ORALLY
     Route: 048
     Dates: start: 20080806
  4. EMTRICITABINE [Suspect]
     Indication: HIV INFECTION
     Dosage: 200 MILLIGRAMS ONCE DAILY ORALLY
     Route: 048
     Dates: start: 20080806
  5. CETIRIZINE HCL [Concomitant]
  6. ASCORBIC ACID [Concomitant]

REACTIONS (5)
  - INTRA-UTERINE DEATH [None]
  - MATERNAL DRUGS AFFECTING FOETUS [None]
  - PRE-ECLAMPSIA [None]
  - PREGNANCY [None]
  - STILLBIRTH [None]
